FAERS Safety Report 8602488-9 (Version None)
Quarter: 2012Q3

REPORT INFORMATION
  Report Type: 
  Country: None (occurrence: None)
  Receive Date: 20120817
  Receipt Date: 20120810
  Transmission Date: 20120928
  Serious: Yes (Hospitalization)
  Sender: FDA-Public Use
  Company Number: DE-ABBOTT-12P-062-0904075-00

PATIENT
  Sex: Male

DRUGS (3)
  1. AZATHIOPRINE SODIUM [Concomitant]
     Indication: PRODUCT USED FOR UNKNOWN INDICATION
     Dosage: IN THE MORNING
  2. MESALAMINE [Concomitant]
     Indication: PRODUCT USED FOR UNKNOWN INDICATION
  3. HUMIRA [Suspect]
     Indication: CROHN'S DISEASE
     Route: 058
     Dates: start: 20080222, end: 20120123

REACTIONS (4)
  - OVERWEIGHT [None]
  - GASTRITIS [None]
  - DRUG INEFFECTIVE [None]
  - HOSPITALISATION [None]
